FAERS Safety Report 8592965-1 (Version None)
Quarter: 2012Q3

REPORT INFORMATION
  Report Type: 
  Country: None (occurrence: None)
  Receive Date: 20120814
  Receipt Date: 19911018
  Transmission Date: 20120928
  Serious: Yes (Hospitalization)
  Sender: FDA-Public Use
  Company Number: US-ROCHE-1099755

PATIENT
  Age: 50 Year
  Sex: Male

DRUGS (3)
  1. NITROGLYCERIN [Concomitant]
     Route: 060
  2. ASPIRIN [Concomitant]
     Dosage: 5 GRAINS DAILY
  3. ACTIVASE [Suspect]
     Indication: ACUTE MYOCARDIAL INFARCTION

REACTIONS (3)
  - BLOOD CREATINE PHOSPHOKINASE INCREASED [None]
  - ARRHYTHMIA [None]
  - MYOCARDIAL INFARCTION [None]
